FAERS Safety Report 8369292-0 (Version None)
Quarter: 2012Q2

REPORT INFORMATION
  Report Type: 
  Country: None (occurrence: None)
  Receive Date: 20120518
  Receipt Date: 20120511
  Transmission Date: 20120825
  Serious: Yes (Disabling, Other)
  Sender: FDA-Public Use
  Company Number: PHHY2012AU027528

PATIENT
  Sex: Female

DRUGS (4)
  1. MOBIC [Concomitant]
     Indication: PAIN
     Dosage: 1 TABLET OF 15 MG AS REQUIRED
     Route: 048
     Dates: start: 20120403
  2. COVERAM [Concomitant]
     Indication: HYPERTENSION
     Dosage: 1 DF, DAILY (5/5)
     Dates: start: 20110906, end: 20120319
  3. PANADOL OSTEO [Concomitant]
     Dosage: 2 DF, TID
     Route: 062
     Dates: start: 20090408
  4. EXFORGE [Suspect]
     Dosage: 80/5 MG, 1 DF, QD
     Dates: start: 20120321, end: 20120326

REACTIONS (3)
  - BONE PAIN [None]
  - POLYMYALGIA RHEUMATICA [None]
  - OEDEMA PERIPHERAL [None]
